FAERS Safety Report 5517974-8 (Version None)
Quarter: 2007Q4

REPORT INFORMATION
  Report Type: 
  Country: None (occurrence: None)
  Receive Date: 20071114
  Receipt Date: 20071114
  Transmission Date: 20080405
  Serious: No
  Sender: FDA-Public Use
  Company Number: None

PATIENT
  Sex: Male
  Weight: 81.6475 kg

DRUGS (7)
  1. BLEOMYCIN [Suspect]
     Indication: HODGKIN'S DISEASE
     Dosage: 21 UNITS EVERY TWO WEEKS INTRACARDIA
     Route: 016
     Dates: start: 20040510, end: 20041102
  2. ALOIX [Concomitant]
  3. DEXAMETHASONE [Concomitant]
  4. ADROMYCIN [Concomitant]
  5. VINBLASTINE SULFATE [Concomitant]
  6. BLEOMYCIN [Concomitant]
  7. DACARBAZINE [Concomitant]

REACTIONS (5)
  - HYPOXIA [None]
  - PULMONARY FIBROSIS [None]
  - RESPIRATORY DISTRESS [None]
  - THERAPEUTIC AGENT TOXICITY [None]
  - UPPER RESPIRATORY TRACT INFECTION [None]
